FAERS Safety Report 7749952-2 (Version None)
Quarter: 2011Q3

REPORT INFORMATION
  Report Type: 
  Country: None (occurrence: None)
  Receive Date: 20110912
  Receipt Date: 20110829
  Transmission Date: 20111222
  Serious: Yes (Other)
  Sender: FDA-Public Use
  Company Number: 2011SP040832

PATIENT
  Sex: Female

DRUGS (1)
  1. PEG-INTRON [Suspect]
     Indication: HEPATITIS C
     Dosage: ;QW;

REACTIONS (3)
  - VISUAL IMPAIRMENT [None]
  - EYE HAEMORRHAGE [None]
  - HAEMOGLOBIN DECREASED [None]
